FAERS Safety Report 8827684 (Version 1)
Quarter: 2012Q4

REPORT INFORMATION
  Report Type: 
  Country: US (occurrence: US)
  Receive Date: 20121008
  Receipt Date: 20121008
  Transmission Date: 20130627
  Serious: No
  Sender: FDA-Public Use
  Company Number: US-PFIZER INC-2012247752

PATIENT
  Sex: Female

DRUGS (1)
  1. EFFEXOR [Suspect]
     Indication: BURNING SENSATION
     Dosage: UNK

REACTIONS (5)
  - Off label use [Unknown]
  - Nervousness [Unknown]
  - Nausea [Unknown]
  - Decreased appetite [Unknown]
  - Insomnia [Unknown]
